FAERS Safety Report 6356049-5 (Version None)
Quarter: 2009Q3

REPORT INFORMATION
  Report Type: 
  Country: None (occurrence: None)
  Receive Date: 20090914
  Receipt Date: 20090914
  Transmission Date: 20100115
  Serious: Yes (Death)
  Sender: FDA-Public Use
  Company Number: None

PATIENT
  Age: 56 Year
  Sex: Male
  Weight: 141.9759 kg

DRUGS (25)
  1. PANITUMUMAB [Suspect]
     Indication: COLON CANCER METASTATIC
     Dosage: 6MG/KG Q14 DAY IV BOLUS
     Route: 040
     Dates: start: 20090610, end: 20090902
  2. ATIVAN [Concomitant]
  3. COMPAZINE [Concomitant]
  4. DILANTIN [Concomitant]
  5. DILTIAZEM [Concomitant]
  6. FORGON [Concomitant]
  7. K-DUR [Concomitant]
  8. KEPPRA [Concomitant]
  9. LANOXIN [Concomitant]
  10. LASIX [Concomitant]
  11. CALTRATE [Concomitant]
  12. LEVEMIR [Concomitant]
  13. LISINOPRIL [Concomitant]
  14. LOMITIL [Concomitant]
  15. LOPERAMIDE HCL [Concomitant]
  16. LOTRIMIN CREAM [Concomitant]
  17. MAGNESIUM OXIDE [Concomitant]
  18. NEURONTIN [Concomitant]
  19. NOVOLOG [Concomitant]
  20. OXYCONTIN [Concomitant]
  21. PROTONIX [Concomitant]
  22. XANAX [Concomitant]
  23. CALCIUM 600 + D [Concomitant]
  24. ASCORBIC ACID [Concomitant]
  25. ZINC SULFATE [Concomitant]

REACTIONS (1)
  - DEATH [None]
